FAERS Safety Report 7135471-3 (Version None)
Quarter: 2010Q4

REPORT INFORMATION
  Report Type: 
  Country: None (occurrence: None)
  Receive Date: 20101203
  Receipt Date: 20101123
  Transmission Date: 20110411
  Serious: Yes (Other)
  Sender: FDA-Public Use
  Company Number: US-AMGEN-USASP2010006363

PATIENT

DRUGS (4)
  1. NPLATE [Suspect]
     Indication: IDIOPATHIC THROMBOCYTOPENIC PURPURA
     Dates: start: 20101104
  2. CORTICOSTEROIDS [Concomitant]
  3. IMMUNOGLOBULINS [Concomitant]
  4. RITUXIMAB [Concomitant]

REACTIONS (3)
  - CYTOMEGALOVIRUS ENTEROCOLITIS [None]
  - GASTROINTESTINAL HAEMORRHAGE [None]
  - SEROSITIS [None]
